FAERS Safety Report 17229009 (Version 1)
Quarter: 2020Q1

REPORT INFORMATION
  Report Type: Spontaneous
  Country: US (occurrence: US)
  Receive Date: 20200102
  Receipt Date: 20200102
  Transmission Date: 20200409
  Serious: Yes (Other)
  Sender: FDA-Public Use
  Company Number: None

PATIENT
  Age: 79 Year
  Sex: Female
  Weight: 69.75 kg

DRUGS (20)
  1. PROAIR HFA [Concomitant]
     Active Substance: ALBUTEROL SULFATE
  2. COSAMIN DS [Concomitant]
     Active Substance: GLUCOSAMINE HYDROCHLORIDE\SODIUM CHONDROITIN SULFATE
  3. ECHINACEA [Concomitant]
     Active Substance: ECHINACEA, UNSPECIFIED
  4. LUTEIN BLUE LIGHT [Concomitant]
  5. MAGNESIUM [Concomitant]
     Active Substance: MAGNESIUM
  6. VITAMIN E [Concomitant]
     Active Substance: .ALPHA.-TOCOPHEROL
  7. AMLODIPINE [Concomitant]
     Active Substance: AMLODIPINE BESYLATE
  8. LUMIGAN [Concomitant]
     Active Substance: BIMATOPROST
  9. SPIRIVA [Concomitant]
     Active Substance: TIOTROPIUM BROMIDE MONOHYDRATE
  10. B 12 SUBLINGUAL [Concomitant]
  11. FUROSEMIDE. [Concomitant]
     Active Substance: FUROSEMIDE
  12. OCUVITE [Concomitant]
     Active Substance: VITAMINS
  13. CALCIUM [Concomitant]
     Active Substance: CALCIUM
  14. TRAVATAN Z [Suspect]
     Active Substance: TRAVOPROST
     Indication: BORDERLINE GLAUCOMA
     Dosage: ?          QUANTITY:1 DROP(S);?
     Route: 047
     Dates: start: 20191219, end: 20191231
  15. LISINIOPRIL [Concomitant]
     Active Substance: LISINOPRIL
  16. ALLOPURINOL. [Concomitant]
     Active Substance: ALLOPURINOL
  17. COENZYME Q10 [Concomitant]
     Active Substance: UBIDECARENONE
  18. VITAMIN D [Concomitant]
     Active Substance: VITAMIN D NOS
  19. COLESTOFF COMPLETE [Concomitant]
  20. ZINC. [Concomitant]
     Active Substance: ZINC

REACTIONS (4)
  - Visual impairment [None]
  - Blood pressure increased [None]
  - Eye pruritus [None]
  - Pruritus [None]

NARRATIVE: CASE EVENT DATE: 20191219
